FAERS Safety Report 6803398-X (Version None)
Quarter: 2010Q2

REPORT INFORMATION
  Report Type: 
  Country: None (occurrence: None)
  Receive Date: 20100628
  Receipt Date: 20100617
  Transmission Date: 20101027
  Serious: Yes (Hospitalization)
  Sender: FDA-Public Use
  Company Number: JP-SANOFI-AVENTIS-2010SA036437

PATIENT
  Sex: Female

DRUGS (10)
  1. OXALIPLATIN [Suspect]
     Indication: LARGE INTESTINE CARCINOMA
     Route: 041
     Dates: start: 20100305, end: 20100305
  2. OXALIPLATIN [Suspect]
     Route: 041
  3. CALCIUM LEVOFOLINATE [Concomitant]
     Indication: LARGE INTESTINE CARCINOMA
     Route: 041
     Dates: start: 20100305, end: 20100305
  4. CALCIUM LEVOFOLINATE [Concomitant]
     Route: 041
  5. FLUOROURACIL [Concomitant]
     Indication: LARGE INTESTINE CARCINOMA
     Route: 040
     Dates: start: 20100305, end: 20100305
  6. FLUOROURACIL [Concomitant]
     Route: 041
     Dates: start: 20100305, end: 20100306
  7. FLUOROURACIL [Concomitant]
     Route: 040
  8. FLUOROURACIL [Concomitant]
     Route: 041
  9. AVASTIN [Concomitant]
     Indication: LARGE INTESTINE CARCINOMA
     Route: 041
     Dates: start: 20100305, end: 20100305
  10. AVASTIN [Concomitant]
     Route: 041

REACTIONS (1)
  - HEPATIC ENCEPHALOPATHY [None]
